FAERS Safety Report 6993226-4 (Version None)
Quarter: 2010Q3

REPORT INFORMATION
  Report Type: 
  Country: None (occurrence: None)
  Receive Date: 20100917
  Receipt Date: 20100316
  Transmission Date: 20110219
  Serious: No
  Sender: FDA-Public Use
  Company Number: US-ASTRAZENECA-2010SE11457

PATIENT
  Sex: Female
  Weight: 92.5 kg

DRUGS (2)
  1. SEROQUEL [Suspect]
     Indication: BIPOLAR DISORDER
     Route: 048
  2. HYDROXYZINE [Concomitant]

REACTIONS (2)
  - DRUG DOSE OMISSION [None]
  - INSOMNIA [None]
